FAERS Safety Report 6258244-2 (Version None)
Quarter: 2009Q3

REPORT INFORMATION
  Report Type: 
  Country: None (occurrence: None)
  Receive Date: 20090707
  Receipt Date: 20090630
  Transmission Date: 20100115
  Serious: Yes (Hospitalization, Other)
  Sender: FDA-Public Use
  Company Number: NO-BRISTOL-MYERS SQUIBB COMPANY-14685168

PATIENT
  Sex: Male

DRUGS (4)
  1. VIDEX [Suspect]
     Dates: start: 20040101, end: 20080501
  2. CIPRALEX [Interacting]
     Dates: start: 20080501
  3. KALETRA [Interacting]
     Indication: HIV INFECTION
     Route: 048
     Dates: start: 20001001, end: 20080501
  4. EPIVIR [Interacting]
     Dates: start: 20001001, end: 20080501

REACTIONS (5)
  - ACUTE ABDOMEN [None]
  - CONDITION AGGRAVATED [None]
  - DRUG INTERACTION [None]
  - LIPOATROPHY [None]
  - LIPODYSTROPHY ACQUIRED [None]
